FAERS Safety Report 5444423-0 (Version None)
Quarter: 2007Q3

REPORT INFORMATION
  Report Type: 
  Country: None (occurrence: None)
  Receive Date: 20070831
  Receipt Date: 20070822
  Transmission Date: 20080115
  Serious: Yes (Other)
  Sender: FDA-Public Use
  Company Number: 160487ISR

PATIENT
  Age: 70 Year
  Sex: Male

DRUGS (3)
  1. IBUPROFEN [Suspect]
  2. DIAZEPAM [Suspect]
  3. CLORPHENAMINE [Suspect]

REACTIONS (4)
  - COMA [None]
  - DRUG TOXICITY [None]
  - HYPOTENSION [None]
  - OVERDOSE [None]
